FAERS Safety Report 4343995-7 (Version None)
Quarter: 2004Q2

REPORT INFORMATION
  Report Type: 
  Country: None (occurrence: None)
  Receive Date: 20040419
  Receipt Date: 20040402
  Transmission Date: 20050107
  Serious: Yes (Life-Threatening)
  Sender: FDA-Public Use
  Company Number: 6008251

PATIENT
  Age: 72 Year
  Sex: Female

DRUGS (5)
  1. METFORMIN (METOFRMIN) [Suspect]
     Indication: DIABETES MELLITUS NON-INSULIN-DEPENDENT
     Dosage: 1000 MG (500 MG, 2 IN 1 D) ORAL
     Route: 048
     Dates: start: 20040203, end: 20040319
  2. DIAZEPAM [Concomitant]
  3. LANSOPRAZOLE [Concomitant]
  4. LOSARTAN(LOSARTAN) [Concomitant]
  5. SIMVASTATIN [Concomitant]

REACTIONS (2)
  - DECREASED APPETITE [None]
  - DEPRESSED MOOD [None]
